FAERS Safety Report 9592889 (Version 1)
Quarter: 2013Q4

REPORT INFORMATION
  Report Type: Report from Study
  Country: BE (occurrence: BE)
  Receive Date: 20131004
  Receipt Date: 20131004
  Transmission Date: 20140711
  Serious: Yes (Death)
  Sender: FDA-Public Use
  Company Number: PHHY2013BE110279

PATIENT
  Sex: Male

DRUGS (2)
  1. SANDOSTATIN LAR [Suspect]
     Indication: POST GASTRIC SURGERY SYNDROME
     Dosage: 20 MG, ONCE MONTHLY
     Route: 030
  2. SANDOSTATIN LAR [Suspect]
     Dosage: 20 MG, ONCE MONTHLY
     Route: 030
     Dates: start: 20130827

REACTIONS (1)
  - Death [Fatal]
